FAERS Safety Report 4920352-3 (Version None)
Quarter: 2006Q1

REPORT INFORMATION
  Report Type: 
  Country: None (occurrence: None)
  Receive Date: 20060223
  Receipt Date: 20050831
  Transmission Date: 20060701
  Serious: Yes (Hospitalization, Disabling)
  Sender: FDA-Public Use
  Company Number: US-MERCK-0509USA00201

PATIENT
  Age: 55 Year
  Sex: Female
  Weight: 49 kg

DRUGS (1)
  1. VIOXX [Suspect]
     Indication: FIBROMYALGIA
     Route: 048
     Dates: start: 20000501, end: 20041001

REACTIONS (10)
  - ASTHENIA [None]
  - CEREBROVASCULAR ACCIDENT [None]
  - COELIAC DISEASE [None]
  - DEPRESSION [None]
  - EMOTIONAL DISORDER [None]
  - FIBROMYALGIA [None]
  - MEMORY IMPAIRMENT [None]
  - MENTAL DISORDER [None]
  - POLYMYALGIA [None]
  - VISUAL DISTURBANCE [None]
